FAERS Safety Report 16023574 (Version 1)
Quarter: 2019Q1

REPORT INFORMATION
  Report Type: Spontaneous
  Country: US (occurrence: US)
  Receive Date: 20190301
  Receipt Date: 20190301
  Transmission Date: 20190418
  Serious: Yes (Hospitalization)
  Sender: FDA-Public Use
  Company Number: US-009507513-1902USA011013

PATIENT
  Age: 30 Year
  Sex: Female

DRUGS (4)
  1. COLISTIN [Concomitant]
     Active Substance: COLISTIN
  2. BENADRYL [Concomitant]
     Active Substance: DIPHENHYDRAMINE HYDROCHLORIDE
  3. NOXAFIL [Suspect]
     Active Substance: POSACONAZOLE
     Dosage: 4 DOSAGE FORM, ONCE DAILY
     Route: 048
  4. VANCOMYCIN [Concomitant]
     Active Substance: VANCOMYCIN

REACTIONS (1)
  - Fungal infection [Unknown]
